FAERS Safety Report 17686549 (Version 2)
Quarter: 2020Q2

REPORT INFORMATION
  Report Type: Report from Study
  Country: None (occurrence: NL)
  Receive Date: 20200420
  Receipt Date: 20200616
  Transmission Date: 20200714
  Serious: No
  Sender: FDA-Public Use
  Company Number: NL-ABBVIE-20K-114-3371309-00

PATIENT
  Sex: Female

DRUGS (1)
  1. DUODOPA [Suspect]
     Active Substance: CARBIDOPA\LEVODOPA
     Indication: PARKINSON^S DISEASE
     Dosage: MD: 5.2, CD: 2.9, ED: 2.3
     Route: 050
     Dates: start: 20150318

REACTIONS (1)
  - COVID-19 pneumonia [Not Recovered/Not Resolved]
